FAERS Safety Report 22013786 (Version 1)
Quarter: 2023Q1

REPORT INFORMATION
  Report Type: Other
  Country: US (occurrence: US)
  Receive Date: 20230221
  Receipt Date: 20230221
  Transmission Date: 20230417
  Serious: No
  Sender: FDA-Public Use
  Company Number: US-GBT-020217

PATIENT
  Age: 11 Year
  Sex: Male

DRUGS (3)
  1. OXBRYTA [Suspect]
     Active Substance: VOXELOTOR
     Indication: Sickle cell disease
     Dosage: 300 MG TABLETS FOR ORAL SUSPENSION
     Route: 048
  2. ENDARI [Concomitant]
     Active Substance: GLUTAMINE
  3. HYDROXYUREA [Concomitant]
     Active Substance: HYDROXYUREA

REACTIONS (2)
  - Abdominal pain upper [Unknown]
  - Therapy cessation [Unknown]
